FAERS Safety Report 4874187-0 (Version None)
Quarter: 2006Q1

REPORT INFORMATION
  Report Type: 
  Country: None (occurrence: None)
  Receive Date: 20060106
  Receipt Date: 20051007
  Transmission Date: 20060701
  Serious: Yes (Hospitalization, Other)
  Sender: FDA-Public Use
  Company Number: PHRM2005FR02710

PATIENT
  Age: 52 Year
  Sex: Female
  Weight: 62 kg

DRUGS (1)
  1. GLEEVEC [Suspect]
     Indication: LIP AND/OR ORAL CAVITY CANCER
     Dosage: 400 MG DAILY
     Route: 048
     Dates: start: 20050601, end: 20051007

REACTIONS (3)
  - MOUTH ULCERATION [None]
  - OSTEOLYSIS [None]
  - SURGERY [None]
